FAERS Safety Report 5292313-9 (Version None)
Quarter: 2007Q2

REPORT INFORMATION
  Report Type: 
  Country: None (occurrence: None)
  Receive Date: 20070410
  Receipt Date: 20070403
  Transmission Date: 20071010
  Serious: Yes (Hospitalization, Other)
  Sender: FDA-Public Use
  Company Number: HQWYE240102SEP05

PATIENT
  Weight: 0.91 kg

DRUGS (5)
  1. RAPAMUNE [Suspect]
     Indication: IMMUNOSUPPRESSANT DRUG THERAPY
     Route: 064
     Dates: start: 20040826, end: 20050408
  2. PREDNISONE TAB [Concomitant]
  3. PROGRAF [Concomitant]
     Indication: IMMUNOSUPPRESSANT DRUG THERAPY
     Route: 064
     Dates: start: 20041011, end: 20041128
  4. PROGRAF [Concomitant]
     Route: 064
     Dates: start: 20041129, end: 20050425
  5. PROGRAF [Concomitant]
     Route: 064
     Dates: start: 20050426

REACTIONS (2)
  - DRUG EXPOSURE DURING PREGNANCY [None]
  - PREMATURE BABY [None]
